FAERS Safety Report 4615563-0 (Version None)
Quarter: 2005Q1

REPORT INFORMATION
  Report Type: 
  Country: None (occurrence: None)
  Receive Date: 20050322
  Receipt Date: 20050105
  Transmission Date: 20050727
  Serious: Yes (Hospitalization)
  Sender: FDA-Public Use
  Company Number: NO-MERCK-0501NOR00003

PATIENT
  Age: 69 Year
  Sex: Female

DRUGS (9)
  1. VIOXX [Suspect]
     Indication: OSTEITIS DEFORMANS
     Route: 048
     Dates: start: 20010701, end: 20040801
  2. HYDROCHLOROTHIAZIDE AND LOSARTAN POTASSIUM [Concomitant]
     Indication: HYPERTENSION
     Route: 065
     Dates: start: 19950101
  3. LANSOPRAZOLE [Concomitant]
     Indication: REFLUX OESOPHAGITIS
     Route: 065
     Dates: start: 19930101
  4. ATORVASTATIN CALCIUM [Concomitant]
     Route: 065
     Dates: start: 19970101
  5. ALLOPURINOL [Concomitant]
     Indication: BLOOD URIC ACID INCREASED
     Route: 065
     Dates: start: 19980101
  6. ATENOLOL [Concomitant]
     Indication: HYPERTENSION
     Route: 065
     Dates: start: 19970101
  7. LEVOTHYROXINE SODIUM [Concomitant]
     Indication: HYPOTHYROIDISM
     Route: 065
     Dates: start: 19990101
  8. ASPIRIN AND MAGNESIUM OXIDE [Concomitant]
     Route: 048
  9. LEVOTHYROXINE SODIUM [Concomitant]
     Route: 065

REACTIONS (7)
  - ANGINA PECTORIS [None]
  - BLOOD CREATININE INCREASED [None]
  - BLOOD UREA INCREASED [None]
  - CORONARY ARTERY OCCLUSION [None]
  - DYSPNOEA [None]
  - FATIGUE [None]
  - VENOUS THROMBOSIS LIMB [None]
